FAERS Safety Report 8692403 (Version 2)
Quarter: 2012Q4

REPORT INFORMATION
  Report Type: 
  Country: DE (occurrence: DE)
  Receive Date: 20120730
  Receipt Date: 20121207
  Transmission Date: 20130627
  Serious: Yes (Death, Hospitalization)
  Sender: FDA-Public Use
  Company Number: DE-B.I. PHARMACEUTICALS,INC./RIDGEFIELD-2012-DE-01757DE

PATIENT
  Sex: Female

DRUGS (2)
  1. PRADAXA [Suspect]
  2. ANALGESICS [Concomitant]

REACTIONS (3)
  - Pulmonary embolism [Fatal]
  - Anaemia [Unknown]
  - Melaena [Unknown]
